FAERS Safety Report 8208878-0 (Version None)
Quarter: 2012Q1

REPORT INFORMATION
  Report Type: 
  Country: None (occurrence: None)
  Receive Date: 20120314
  Receipt Date: 20120312
  Transmission Date: 20120608
  Serious: Yes (Other)
  Sender: FDA-Public Use
  Company Number: CA-ROCHE-1047962

PATIENT
  Sex: Female

DRUGS (3)
  1. AVASTIN [Suspect]
     Indication: GLIOBLASTOMA
     Route: 042
     Dates: start: 20111122
  2. AVASTIN [Suspect]
     Route: 042
     Dates: start: 20111222
  3. AVASTIN [Suspect]
     Route: 042
     Dates: start: 20120202

REACTIONS (1)
  - CONVULSION [None]
